FAERS Safety Report 21033423 (Version 1)
Quarter: 2022Q3

REPORT INFORMATION
  Report Type: Spontaneous
  Country: US (occurrence: US)
  Receive Date: 20220701
  Receipt Date: 20220701
  Transmission Date: 20221027
  Serious: Yes (Life-Threatening, Hospitalization, Other)
  Sender: FDA-Public Use
  Company Number: US-MLMSERVICE-20220617-3625633-1

PATIENT
  Age: 48 Year
  Sex: Male

DRUGS (3)
  1. GLIPIZIDE [Suspect]
     Active Substance: GLIPIZIDE
     Indication: Hyperglycaemia
  2. LISINOPRIL AND HYDROCHLOROTHIAZIDE [Suspect]
     Active Substance: HYDROCHLOROTHIAZIDE\LISINOPRIL
     Indication: Product used for unknown indication
  3. PREDNISONE [Concomitant]
     Active Substance: PREDNISONE
     Indication: Autoimmune hepatitis

REACTIONS (5)
  - Toxic epidermal necrolysis [Recovering/Resolving]
  - Klebsiella infection [Recovering/Resolving]
  - Staphylococcal infection [Recovering/Resolving]
  - Pseudomonas infection [Recovering/Resolving]
  - Enterobacter infection [Recovering/Resolving]
